FAERS Safety Report 22353560 (Version 1)
Quarter: 2023Q2

REPORT INFORMATION
  Report Type: Report from Study
  Country: US (occurrence: None)
  Receive Date: 20230523
  Receipt Date: 20230523
  Transmission Date: 20230721
  Serious: Yes (Other)
  Sender: FDA-Public Use
  Company Number: US-ROCHE-3349198

PATIENT

DRUGS (9)
  1. RITUXIMAB [Suspect]
     Active Substance: RITUXIMAB
     Indication: Burkitt^s lymphoma
     Dosage: TOTAL DOSE 806 MG, SUBSEQUENT DOSE OF RITUXIMAB 375 MG/M2 FROM 14/NOV/2012 TO 15/NOV/2012 (TOTAL DOS
     Route: 042
     Dates: start: 20121025, end: 20121025
  2. FILGRASTIM [Suspect]
     Active Substance: FILGRASTIM
     Indication: Burkitt^s lymphoma
     Dosage: TOTAL DOSE 5280 MG, SUBSEQUENT DOSE OF FILGRASTIM 480 UG, FROM 19/NOV/2012 TO 28/NOV/2012 (TOTAL DOS
     Route: 065
     Dates: start: 20121101, end: 20121111
  3. CYCLOPHOSPHAMIDE [Suspect]
     Active Substance: CYCLOPHOSPHAMIDE
     Indication: Burkitt^s lymphoma
     Dosage: TOTAL DOSE 1683 MG, SUBSEQUENT DOSE OF CYCLOPHOSPHAMIDE 750 MG/M2 FROM 19/NOV/2012 TO 19/NOV/2012 (T
     Route: 065
     Dates: start: 20121029, end: 20121029
  4. CYCLOPHOSPHAMIDE [Suspect]
     Active Substance: CYCLOPHOSPHAMIDE
     Dosage: TOTAL DOSE 1290 MG, SUBSEQUENT DOSE OF CYCLOPHOSPHAMIDE 600 MG/M2 FROM 20/APR/2013 TO 20/APR/2013 (T
     Route: 065
     Dates: start: 20130306, end: 20130306
  5. DOXORUBICIN [Suspect]
     Active Substance: DOXORUBICIN
     Indication: Burkitt^s lymphoma
     Dosage: TOTAL DOSE 88 MG, SUBSEQUENT DOSE OF DOXORUBICIN 10 MG/M2 FROM 15/NOV/2012 TO 18/NOV/2012 (TOTAL DOS
     Route: 065
     Dates: start: 20121025, end: 20121028
  6. ETOPOSIDE [Suspect]
     Active Substance: ETOPOSIDE
     Indication: Burkitt^s lymphoma
     Dosage: TOTAL DOSE 432 MG, SUBSEQUENT DOSE OF ETOPOSIDE 50 MG/M2 FROM 15/NOV/2012 TO 18/NOV/2012 (TOTAL DOSE
     Route: 065
     Dates: start: 20121025, end: 20121028
  7. METHOTREXATE [Suspect]
     Active Substance: METHOTREXATE
     Indication: Burkitt^s lymphoma
     Dosage: TOTAL DOSE 12 MG, SUBSEQUENT DOSE OF METHOTREXATE 12 MG FROM 14/DEC/2012 TO 14/DEC/2012 (TOTAL DOSE
     Route: 065
     Dates: start: 20121210, end: 20121210
  8. PREDNISONE [Suspect]
     Active Substance: PREDNISONE
     Indication: Burkitt^s lymphoma
     Dosage: TOTAL DOSE 1300 MG, SUBSEQUENT DOSE OF PREDNISONE 60 MG/M2, FROM 25/OCT/2012 TO 30/OCT/2012 (TOTAL D
     Route: 065
     Dates: start: 20121025, end: 20121030
  9. VINCRISTINE [Suspect]
     Active Substance: VINCRISTINE
     Indication: Burkitt^s lymphoma
     Dosage: TOTAL DOSE 3.44 MG, SUBSEQUENT DOSE OF VINCRISTINE 0.4 MG/M2, FROM 15/NOV/2012 TO 18/NOV/2012 (TOTAL
     Route: 065
     Dates: start: 20121025, end: 20121028

REACTIONS (4)
  - White blood cell count decreased [Recovered/Resolved]
  - Platelet count decreased [Recovered/Resolved]
  - Neutrophil count decreased [Recovered/Resolved]
  - Lymphocyte count decreased [Recovered/Resolved]

NARRATIVE: CASE EVENT DATE: 20130211
